FAERS Safety Report 5157613-1 (Version None)
Quarter: 2006Q4

REPORT INFORMATION
  Report Type: 
  Country: None (occurrence: None)
  Receive Date: 20061127
  Receipt Date: 20061113
  Transmission Date: 20070319
  Serious: Yes (Hospitalization)
  Sender: FDA-Public Use
  Company Number: DE-PURDUE-DEU_2006_0002660

PATIENT
  Age: 62 Year
  Sex: Male

DRUGS (2)
  1. TARGIN 10/5 MG RETARDTABLETTEN [Suspect]
     Indication: PAIN
     Dosage: 10 MG, BID
     Route: 048
     Dates: end: 20061108
  2. DICLOFENAC SODIUM [Suspect]

REACTIONS (1)
  - INTESTINAL HAEMORRHAGE [None]
